FAERS Safety Report 9241145 (Version 2)
Quarter: 2013Q2

REPORT INFORMATION
  Report Type: Spontaneous
  Country: US (occurrence: US)
  Receive Date: 20130419
  Receipt Date: 20130426
  Transmission Date: 20140414
  Serious: Yes (Other)
  Sender: FDA-Public Use
  Company Number: US-PFIZER INC-2013123576

PATIENT
  Age: 61 Year
  Sex: Female
  Weight: 65.31 kg

DRUGS (6)
  1. PROTONIX [Suspect]
     Indication: GASTROOESOPHAGEAL REFLUX DISEASE
     Dosage: 1 DF, 1X/DAY
  2. PROTONIX [Suspect]
     Dosage: 2 DF, 1X/DAY
  3. DETROL LA [Suspect]
     Indication: URINARY INCONTINENCE
     Dosage: UNK
  4. FOLIC ACID [Concomitant]
     Dosage: UNK
  5. PRISTIQ [Concomitant]
     Indication: DEPRESSION
     Dosage: UNK
  6. PRISTIQ [Concomitant]
     Indication: ANXIETY

REACTIONS (8)
  - Rheumatoid arthritis [Recovering/Resolving]
  - Osteoarthritis [Recovering/Resolving]
  - Fibromyalgia [Recovering/Resolving]
  - Rotator cuff syndrome [Unknown]
  - Throat irritation [Not Recovered/Not Resolved]
  - Sinus disorder [Not Recovered/Not Resolved]
  - Headache [Not Recovered/Not Resolved]
  - Joint dislocation [Unknown]
